FAERS Safety Report 11585543 (Version 1)
Quarter: 2015Q4

REPORT INFORMATION
  Report Type: Spontaneous
  Country: PL (occurrence: PL)
  Receive Date: 20151001
  Receipt Date: 20151001
  Transmission Date: 20160304
  Serious: Yes (Other)
  Sender: FDA-Public Use
  Company Number: PL-B.I. PHARMACEUTICALS,INC./RIDGEFIELD-2015-BI-53588YA

PATIENT
  Age: 81 Year
  Sex: Male

DRUGS (2)
  1. OMNIC OCAS [Suspect]
     Active Substance: TAMSULOSIN HYDROCHLORIDE
     Indication: NOCTURIA
     Dosage: FORMULATION: MODIFIED-RELEASE TABLET,
     Route: 048
  2. OMNIC OCAS [Suspect]
     Active Substance: TAMSULOSIN HYDROCHLORIDE
     Indication: URINE FLOW DECREASED

REACTIONS (7)
  - Headache [Recovered/Resolved]
  - Pain [Unknown]
  - Enuresis [Recovered/Resolved]
  - Hypotension [Unknown]
  - Tachycardia [Recovered/Resolved]
  - Vertigo [Recovered/Resolved]
  - Hyperhidrosis [Recovered/Resolved]
